FAERS Safety Report 10246906 (Version 1)
Quarter: 2014Q2

REPORT INFORMATION
  Report Type: Spontaneous
  Country: CH (occurrence: CH)
  Receive Date: 20140619
  Receipt Date: 20140619
  Transmission Date: 20141212
  Serious: Yes (Other)
  Sender: FDA-Public Use
  Company Number: CH-WATSON-2014-13956

PATIENT
  Age: 62 Year
  Sex: Female

DRUGS (3)
  1. EMLA (WATSON LABORATORIES) [Suspect]
     Indication: PAIN
     Dosage: 1 DF, SINGLE
     Route: 061
     Dates: start: 20140202, end: 20140202
  2. REMERON [Concomitant]
     Indication: DEPRESSION
     Dosage: 7 MG, DAILY
     Route: 065
     Dates: start: 2011
  3. REMERON [Concomitant]
     Dosage: QUARTER OF A TABLET DAILY
     Route: 065
     Dates: start: 2011

REACTIONS (2)
  - Transient global amnesia [Recovered/Resolved]
  - Off label use [Recovered/Resolved]
